FAERS Safety Report 13348228 (Version 1)
Quarter: 2017Q1

REPORT INFORMATION
  Report Type: Spontaneous
  Country: US (occurrence: US)
  Receive Date: 20170318
  Receipt Date: 20170318
  Transmission Date: 20170428
  Serious: No
  Sender: FDA-Public Use
  Company Number: US-ELI_LILLY_AND_COMPANY-US201608005986

PATIENT
  Age: 61 Year
  Sex: Male

DRUGS (1)
  1. CYMBALTA [Suspect]
     Active Substance: DULOXETINE HYDROCHLORIDE
     Indication: PRODUCT USED FOR UNKNOWN INDICATION
     Dosage: 60 MG, BID
     Route: 048
     Dates: start: 201202, end: 20121010

REACTIONS (14)
  - Tremor [Unknown]
  - Drug withdrawal syndrome [Unknown]
  - Neuropathy peripheral [Unknown]
  - Irritability [Unknown]
  - Paraesthesia [Unknown]
  - Diarrhoea [Unknown]
  - Anxiety [Unknown]
  - Agitation [Unknown]
  - Vertigo [Unknown]
  - Sensory disturbance [Unknown]
  - Fatigue [Unknown]
  - Depression [Unknown]
  - Confusional state [Unknown]
  - Dizziness [Unknown]

NARRATIVE: CASE EVENT DATE: 20121010
